FAERS Safety Report 24738032 (Version 1)
Quarter: 2024Q4

REPORT INFORMATION
  Report Type: Spontaneous
  Country: US (occurrence: None)
  Receive Date: 20241211
  Receipt Date: 20241211
  Transmission Date: 20250114
  Serious: Yes (Death, Life-Threatening, Hospitalization, Disabling, Other)
  Sender: Public
  Company Number: None

PATIENT
  Age: 40 Year
  Sex: Male
  Weight: 93.9 kg

DRUGS (4)
  1. IBOGAINE [Suspect]
     Active Substance: IBOGAINE
     Dates: start: 20241207
  2. COCAINE [Concomitant]
     Active Substance: COCAINE
  3. DRONABINOL [Concomitant]
     Active Substance: DRONABINOL
  4. BENZODIAZEPINE [Concomitant]
     Active Substance: BENZODIAZEPINE

REACTIONS (7)
  - Self-medication [None]
  - Fall [None]
  - Ventricular tachycardia [None]
  - Cardio-respiratory arrest [None]
  - Electrocardiogram QT prolonged [None]
  - Hypoxic-ischaemic encephalopathy [None]
  - Brain death [None]

NARRATIVE: CASE EVENT DATE: 20241207
